FAERS Safety Report 7509170-X (Version None)
Quarter: 2011Q2

REPORT INFORMATION
  Report Type: 
  Country: None (occurrence: None)
  Receive Date: 20110527
  Receipt Date: 20100624
  Transmission Date: 20111010
  Serious: Yes (Death)
  Sender: FDA-Public Use
  Company Number: US-MYLANLABS-2010S1011319

PATIENT
  Age: 42 Year
  Sex: Female
  Weight: 86.18 kg

DRUGS (6)
  1. OXYGEN [Concomitant]
  2. HYDROCODONE BITARTRATE [Suspect]
     Indication: PAIN
  3. AMITRIPTYLINE HCL [Suspect]
     Indication: SLEEP DISORDER
  4. SPIRIVA [Suspect]
     Indication: ASTHMA
     Route: 055
  5. LYRICA [Suspect]
     Indication: FIBROMYALGIA
     Route: 048
     Dates: start: 20080801
  6. LORAZEPAM [Suspect]
     Indication: ANXIETY

REACTIONS (3)
  - INTENTIONAL OVERDOSE [None]
  - COMPLETED SUICIDE [None]
  - SUICIDAL IDEATION [None]
